FAERS Safety Report 9554974 (Version 2)
Quarter: 2013Q4

REPORT INFORMATION
  Report Type: Spontaneous
  Country: CH (occurrence: CH)
  Receive Date: 20130926
  Receipt Date: 20131022
  Transmission Date: 20140711
  Serious: Yes (Death, Hospitalization, Other)
  Sender: FDA-Public Use
  Company Number: CH-BRISTOL-MYERS SQUIBB COMPANY-19390137

PATIENT
  Age: 83 Year
  Sex: Male

DRUGS (15)
  1. YERVOY [Suspect]
     Indication: MALIGNANT MELANOMA
     Dosage: TOTAL 500MG-19FEB13?14MAY13-3MG/KG
     Route: 042
     Dates: start: 20130219, end: 20130514
  2. CALCIMAGON [Concomitant]
  3. CALOGEN [Concomitant]
  4. DAFALGAN [Concomitant]
  5. ENSURE PLUS [Concomitant]
  6. LAXOBERON [Concomitant]
  7. NOVALGIN [Concomitant]
  8. PARAGAR [Concomitant]
  9. PREDNISONE [Concomitant]
  10. FRAGMIN [Concomitant]
  11. MIDAZOLAM [Concomitant]
  12. PASPERTIN [Concomitant]
  13. SERESTA [Concomitant]
  14. MORPHINE [Concomitant]
  15. TEMODAL [Concomitant]

REACTIONS (4)
  - Malignant neoplasm progression [Fatal]
  - Anaemia [Unknown]
  - Spinal fracture [Unknown]
  - Muscular weakness [Unknown]
